FAERS Safety Report 6129624-0 (Version None)
Quarter: 2009Q1

REPORT INFORMATION
  Report Type: 
  Country: None (occurrence: None)
  Receive Date: 20090320
  Receipt Date: 20090309
  Transmission Date: 20090719
  Serious: Yes (Other)
  Sender: FDA-Public Use
  Company Number: 200903AGG00858

PATIENT
  Age: 73 Year
  Sex: Female

DRUGS (4)
  1. TIROFIBAN HYDROCHLORIDE (TIROFIBAN HC1) (10 MCG/KG, 0.15 MCG/KG) [Suspect]
     Indication: ACUTE MYOCARDIAL INFARCTION
     Dosage: (INTRAVENOUS BOLUS)
     Route: 040
  2. TIROFIBAN HYDROCHLORIDE (TIROFIBAN HYDROCHLORIDE) [Suspect]
     Dosage: INTRAVENOUS DRIP
     Route: 041
  3. ASPIRIN [Concomitant]
  4. CLOPIDOGREL BISULFATE [Concomitant]

REACTIONS (1)
  - CORONARY ARTERY STENOSIS [None]
